FAERS Safety Report 13430251 (Version 1)
Quarter: 2017Q2

REPORT INFORMATION
  Report Type: Spontaneous
  Country: US (occurrence: US)
  Receive Date: 20170411
  Receipt Date: 20170411
  Transmission Date: 20170830
  Serious: No
  Sender: FDA-Public Use
  Company Number: None

PATIENT
  Sex: Male

DRUGS (1)
  1. SUTENT [Suspect]
     Active Substance: SUNITINIB MALATE
     Indication: PRODUCT USED FOR UNKNOWN INDICATION
     Dosage: 37.5MG DAILY ON DAYS 1-28 OF 42 DAY CYCLE PO
     Route: 048
     Dates: start: 20170117

REACTIONS (3)
  - Dyspepsia [None]
  - Glossodynia [None]
  - Blood pressure abnormal [None]
